FAERS Safety Report 8458607-0 (Version None)
Quarter: 2012Q2

REPORT INFORMATION
  Report Type: 
  Country: None (occurrence: None)
  Receive Date: 20120622
  Receipt Date: 20110628
  Transmission Date: 20120825
  Serious: Yes (Hospitalization)
  Sender: FDA-Public Use
  Company Number: FR-NOVOPROD-331201

PATIENT
  Age: 76 Year
  Sex: Male

DRUGS (7)
  1. PREVISCAN                          /00261401/ [Concomitant]
  2. RAMIPRIL [Concomitant]
  3. AMIODARONE HYDROCHLORIDE [Concomitant]
  4. LEVEMIR [Suspect]
     Indication: PRODUCT USED FOR UNKNOWN INDICATION
     Dosage: UNK
     Route: 058
     Dates: start: 20110621, end: 20110622
  5. ATORVASTATIN [Concomitant]
  6. FUROSEMIDE [Concomitant]
  7. ASPIRIN [Concomitant]

REACTIONS (2)
  - PRURITUS GENERALISED [None]
  - DYSPNOEA [None]
